FAERS Safety Report 6583217-X (Version None)
Quarter: 2010Q1

REPORT INFORMATION
  Report Type: 
  Country: None (occurrence: None)
  Receive Date: 20100125
  Receipt Date: 20091123
  Transmission Date: 20100710
  Serious: Yes (Other)
  Sender: FDA-Public Use
  Company Number: 2009BI033360

PATIENT
  Age: 41 Year
  Sex: Male

DRUGS (7)
  1. TYSABRI [Suspect]
     Indication: MULTIPLE SCLEROSIS
     Dosage: 300 MG; QM; IV
     Route: 042
     Dates: start: 20080723
  2. LORAZEPAM [Concomitant]
  3. GABAPENTIN [Concomitant]
  4. OXCARBAZEPINE [Concomitant]
  5. BUPROPION HCL [Concomitant]
  6. OXYBUTYNIN [Concomitant]
  7. REBIF [Concomitant]

REACTIONS (25)
  - ABDOMINAL PAIN [None]
  - ARTHRALGIA [None]
  - ASTHENIA [None]
  - BALANCE DISORDER [None]
  - CONFUSIONAL STATE [None]
  - DIZZINESS [None]
  - FACIAL BONES FRACTURE [None]
  - HYPERSOMNIA [None]
  - IMMUNE SYSTEM DISORDER [None]
  - IMPLANT SITE PAIN [None]
  - INFLUENZA [None]
  - MEMORY IMPAIRMENT [None]
  - MENTAL IMPAIRMENT [None]
  - MIGRAINE [None]
  - MOOD ALTERED [None]
  - MOOD SWINGS [None]
  - MUSCLE SPASMS [None]
  - MUSCLE SPASTICITY [None]
  - MYALGIA [None]
  - NASOPHARYNGITIS [None]
  - PAIN IN EXTREMITY [None]
  - PERIORBITAL HAEMATOMA [None]
  - PHYSICAL ASSAULT [None]
  - VISUAL IMPAIRMENT [None]
  - WHITE BLOOD CELL COUNT INCREASED [None]
